FAERS Safety Report 9078192 (Version 1)
Quarter: 2013Q1

REPORT INFORMATION
  Report Type: Report from Study
  Country: US (occurrence: US)
  Receive Date: 20130130
  Receipt Date: 20130130
  Transmission Date: 20140127
  Serious: No
  Sender: FDA-Public Use
  Company Number: US-ABBOTT-12P-163-0971664-00

PATIENT
  Age: 16 None
  Sex: Female
  Weight: 54.48 kg

DRUGS (7)
  1. HUMIRA 40 MG/0.8 ML PEN [Suspect]
     Indication: JUVENILE IDIOPATHIC ARTHRITIS
     Dates: start: 201207, end: 20120803
  2. HUMIRA 40 MG/0.8 ML PEN [Suspect]
     Dates: start: 20120813
  3. FOLIC ACID [Concomitant]
     Indication: VITAMIN SUPPLEMENTATION
  4. MELOXICAM [Concomitant]
     Indication: JUVENILE IDIOPATHIC ARTHRITIS
  5. METHOTREXATE [Concomitant]
     Indication: JUVENILE IDIOPATHIC ARTHRITIS
  6. MULTIPLE VITAMINS [Concomitant]
     Indication: VITAMIN SUPPLEMENTATION
  7. PRILOSEC [Concomitant]
     Indication: PROPHYLAXIS

REACTIONS (2)
  - Pain [Not Recovered/Not Resolved]
  - Sinusitis [Recovered/Resolved]
